FAERS Safety Report 5126074-0 (Version None)
Quarter: 2006Q4

REPORT INFORMATION
  Report Type: 
  Country: None (occurrence: None)
  Receive Date: 20061012
  Receipt Date: 20061004
  Transmission Date: 20070319
  Serious: Yes (Other)
  Sender: FDA-Public Use
  Company Number: US-ROCHE-466223

PATIENT
  Age: 54 Year
  Sex: Female
  Weight: 43.5 kg

DRUGS (1)
  1. BONIVA [Suspect]
     Indication: OSTEOPENIA
     Dosage: DOSAGE REGIMEN REPORTED AS MONTHLY
     Route: 048
     Dates: start: 20060901, end: 20061001

REACTIONS (8)
  - CHILLS [None]
  - DYSGEUSIA [None]
  - FATIGUE [None]
  - INSOMNIA [None]
  - LOSS OF CONSCIOUSNESS [None]
  - PHARYNGOLARYNGEAL PAIN [None]
  - PYREXIA [None]
  - VISUAL DISTURBANCE [None]
